FAERS Safety Report 9454863 (Version 4)
Quarter: 2014Q1

REPORT INFORMATION
  Report Type: Spontaneous
  Country: US (occurrence: US)
  Receive Date: 20130813
  Receipt Date: 20140121
  Transmission Date: 20141002
  Serious: Yes (Hospitalization, Other)
  Sender: FDA-Public Use
  Company Number: PHEH2009US019108

PATIENT
  Sex: Female

DRUGS (28)
  1. ZOMETA [Suspect]
     Indication: BREAST CANCER METASTATIC
     Dosage: 4 MG, UNK
     Route: 042
     Dates: start: 20040305, end: 200706
  2. AREDIA [Suspect]
     Route: 042
  3. EFFEXOR [Concomitant]
     Dosage: 75 MG, QD
     Route: 048
  4. AMBIEN [Concomitant]
     Dosage: 10 MG, QHS
     Route: 048
  5. LEXAPRO [Concomitant]
     Dosage: 20 MG, QD
     Route: 048
  6. MULTIVITAMINS [Concomitant]
  7. FEMARA [Concomitant]
  8. VICODIN [Concomitant]
  9. TRAZODONE [Concomitant]
     Dosage: 150 MG, QHS
     Route: 048
  10. WELLBUTRIN [Concomitant]
     Dosage: 150 MG,
  11. AROMASIN [Concomitant]
     Dosage: 25 MG, QD
  12. PRILOSEC [Concomitant]
     Dosage: 20 MG, BID
  13. CYMBALTA [Concomitant]
     Dosage: 30 MG, BID
  14. TOPROL XL [Concomitant]
     Dosage: 50 MG, QD
  15. ALBUTEROL [Concomitant]
     Dosage: 90 UG,
  16. TAXOL [Concomitant]
  17. FASLODEX [Concomitant]
  18. TAMOXIFEN [Concomitant]
  19. ABRAXANE [Concomitant]
  20. ARIMIDEX ^ASTRAZENECA^ [Concomitant]
  21. AVELOX [Concomitant]
  22. CHEMOTHERAPEUTICS [Concomitant]
  23. LIPITOR [Concomitant]
  24. RADIATION THERAPY [Concomitant]
  25. CLARITIN [Concomitant]
     Dosage: 10 MG, UNK
  26. ADVAIR [Concomitant]
  27. SEROQUEL [Concomitant]
     Dosage: 25 MG, UNK
  28. MELATONIN [Concomitant]

REACTIONS (130)
  - Osteonecrosis of jaw [Unknown]
  - Injury [Unknown]
  - Jaw fracture [Unknown]
  - Bone erosion [Unknown]
  - Bone lesion [Unknown]
  - Anhedonia [Unknown]
  - Oral cavity fistula [Unknown]
  - Bone loss [Unknown]
  - Pain [Unknown]
  - Anxiety [Unknown]
  - General physical health deterioration [Unknown]
  - Depression [Unknown]
  - Osteopenia [Unknown]
  - Spinal osteoarthritis [Unknown]
  - Lung neoplasm [Unknown]
  - Gastrooesophageal reflux disease [Unknown]
  - Hiatus hernia [Unknown]
  - Gastritis [Unknown]
  - Abdominal pain [Unknown]
  - Vocal cord paralysis [Recovered/Resolved]
  - Osteomyelitis [Unknown]
  - Dyspnoea [Unknown]
  - Cholecystitis [Unknown]
  - Neuropathy peripheral [Unknown]
  - Coronary artery disease [Unknown]
  - Asthma [Unknown]
  - Hypertension [Unknown]
  - Malignant neoplasm progression [Unknown]
  - Neoplasm progression [Unknown]
  - Metastases to bone [Unknown]
  - Metastases to lymph nodes [Unknown]
  - Metastases to liver [Unknown]
  - Spondylolisthesis [Unknown]
  - Renal cyst [Unknown]
  - Osteitis deformans [Unknown]
  - Exposed bone in jaw [Unknown]
  - Face injury [Unknown]
  - Dysthymic disorder [Unknown]
  - Suicidal ideation [Unknown]
  - Chronic obstructive pulmonary disease [Unknown]
  - Blood cholesterol increased [Unknown]
  - Lymphadenopathy mediastinal [Recovering/Resolving]
  - Hepatic steatosis [Unknown]
  - Cyst [Unknown]
  - Chronic sinusitis [Unknown]
  - Lymphoedema [Unknown]
  - Osteoarthritis [Unknown]
  - Back pain [Unknown]
  - Dizziness [Unknown]
  - Chest pain [Unknown]
  - Alopecia [Unknown]
  - Laryngitis [Unknown]
  - Palatal disorder [Unknown]
  - Dysphoria [Unknown]
  - Hot flush [Unknown]
  - Headache [Unknown]
  - Hyperlipidaemia [Unknown]
  - Nasal discomfort [Unknown]
  - Orbital oedema [Unknown]
  - Hepatic cyst [Unknown]
  - Cataract [Unknown]
  - Haematochezia [Unknown]
  - Intervertebral disc degeneration [Unknown]
  - Soft tissue disorder [Unknown]
  - Hilar lymphadenopathy [Unknown]
  - Rib fracture [Recovering/Resolving]
  - Muscle haemorrhage [Unknown]
  - Arteriosclerosis coronary artery [Unknown]
  - Hepatic lesion [Unknown]
  - Splenic granuloma [Unknown]
  - Meningioma [Unknown]
  - Brain neoplasm [Unknown]
  - Vision blurred [Unknown]
  - Haemangioma of liver [Unknown]
  - Pulmonary pneumatocele [Unknown]
  - Facial bones fracture [Unknown]
  - Fall [Unknown]
  - Fracture [Unknown]
  - Tachycardia [Unknown]
  - Abdominal discomfort [Unknown]
  - Abdominal infection [Unknown]
  - Aorticopulmonary septal defect [Unknown]
  - Mental disorder [Unknown]
  - Dysphonia [Unknown]
  - Atrophy [Unknown]
  - Impaired healing [Unknown]
  - Infection [Unknown]
  - Swelling [Recovering/Resolving]
  - Purulence [Unknown]
  - Toothache [Unknown]
  - Loose tooth [Unknown]
  - Cheilitis [Unknown]
  - Bruxism [Unknown]
  - Jaw disorder [Unknown]
  - Arthritis [Unknown]
  - Scarlet fever [Unknown]
  - Urinary tract infection [Unknown]
  - Pneumonia [Unknown]
  - Dental caries [Unknown]
  - Dysgeusia [Unknown]
  - Cough [Unknown]
  - Nausea [Unknown]
  - Asthenia [Unknown]
  - Weight decreased [Unknown]
  - Panic attack [Unknown]
  - Ecchymosis [Unknown]
  - Excessive granulation tissue [Unknown]
  - Nasal septum deviation [Unknown]
  - Pulmonary fibrosis [Unknown]
  - Onychomycosis [Unknown]
  - Hypercholesterolaemia [Unknown]
  - Dehydration [Unknown]
  - Oesophagitis [Unknown]
  - Impaired gastric emptying [Unknown]
  - Emphysema [Unknown]
  - Tooth infection [Unknown]
  - Pyrexia [Unknown]
  - Chills [Unknown]
  - Arteriosclerosis [Unknown]
  - Vascular calcification [Unknown]
  - Sinus tachycardia [Unknown]
  - Atelectasis [Unknown]
  - Tricuspid valve incompetence [Unknown]
  - Cerebral atrophy [Unknown]
  - Paratracheal lymphadenopathy [Unknown]
  - Lymphadenopathy [Unknown]
  - Diarrhoea [Unknown]
  - Bronchitis chronic [Unknown]
  - Vitamin D deficiency [Unknown]
  - Hypokalaemia [Unknown]
